FAERS Safety Report 25332242 (Version 3)
Quarter: 2025Q3

REPORT INFORMATION
  Report Type: Spontaneous
  Country: KR (occurrence: KR)
  Receive Date: 20250519
  Receipt Date: 20250805
  Transmission Date: 20251021
  Serious: Yes (Other)
  Sender: PFIZER
  Company Number: KR-PFIZER INC-PV202500059492

PATIENT
  Age: 60 Year
  Sex: Female

DRUGS (73)
  1. IBRANCE [Suspect]
     Active Substance: PALBOCICLIB
     Indication: Malignant neoplasm of thymus
     Route: 048
  2. MACPERAN [METOCLOPRAMIDE] [Concomitant]
     Indication: Prophylaxis of nausea and vomiting
     Dosage: 10 MG (2 TABS OF 5 MG), 3X/DAY FOR 5 DAYS, 30 MIN BEFORE EACH MEAL, POSSIBLE BEFORE TAKING THE DRUG
     Route: 048
  3. NALOXONE HYDROCHLORIDE\OXYCODONE HYDROCHLORIDE [Concomitant]
     Active Substance: NALOXONE HYDROCHLORIDE\OXYCODONE HYDROCHLORIDE
     Dosage: 1 DF, 2X/DAY (EVERY 12HOURS)
     Route: 048
  4. NUCYNTA ER [Concomitant]
     Active Substance: TAPENTADOL HYDROCHLORIDE
     Dosage: 100 MG (1 TAB), 2X/DAY (EVERY 12 HOURS)
     Route: 048
  5. ALFUZOSIN [Concomitant]
     Active Substance: ALFUZOSIN
     Dosage: 10 MG (1 TAB), 1X/DAY (IMMEDIATELY AFTER DINNER, FOR 14 DAYS)
     Route: 048
  6. BEPOTEN [Concomitant]
     Dosage: 10 MG (1 TAB), 2X/DAY (IMMEDIATELY AFTER BREAKFAST AND DINNER, FOR 14 DAYS)
     Route: 048
  7. OXYCODONE HYDROCHLORIDE [Concomitant]
     Active Substance: OXYCODONE HYDROCHLORIDE
     Indication: Pain
     Dosage: 10 MG (2 TABLETS OF 5 MG), 3X/DAY (FOR 14 DAYS)
     Route: 048
  8. MAGNESIUM HYDROXIDE [Concomitant]
     Active Substance: MAGNESIUM HYDROXIDE
  9. MAGNESIUM HYDROXIDE [Concomitant]
     Active Substance: MAGNESIUM HYDROXIDE
  10. MAGNESIUM HYDROXIDE [Concomitant]
     Active Substance: MAGNESIUM HYDROXIDE
  11. MAGNESIUM HYDROXIDE [Concomitant]
     Active Substance: MAGNESIUM HYDROXIDE
  12. MAGNESIUM HYDROXIDE [Concomitant]
     Active Substance: MAGNESIUM HYDROXIDE
  13. MAGNESIUM HYDROXIDE [Concomitant]
     Active Substance: MAGNESIUM HYDROXIDE
  14. MAGNESIUM HYDROXIDE [Concomitant]
     Active Substance: MAGNESIUM HYDROXIDE
  15. ZANAPAM [Concomitant]
  16. ZANAPAM [Concomitant]
  17. ZANAPAM [Concomitant]
  18. RIVOTRIL [Concomitant]
     Active Substance: CLONAZEPAM
  19. RIVOTRIL [Concomitant]
     Active Substance: CLONAZEPAM
  20. RIVOTRIL [Concomitant]
     Active Substance: CLONAZEPAM
  21. TRAZODONE [Concomitant]
     Active Substance: TRAZODONE HYDROCHLORIDE
  22. TRAZODONE [Concomitant]
     Active Substance: TRAZODONE HYDROCHLORIDE
  23. TRAZODONE [Concomitant]
     Active Substance: TRAZODONE HYDROCHLORIDE
  24. TRAZODONE [Concomitant]
     Active Substance: TRAZODONE HYDROCHLORIDE
  25. TRAZODONE [Concomitant]
     Active Substance: TRAZODONE HYDROCHLORIDE
  26. TRAZODONE [Concomitant]
     Active Substance: TRAZODONE HYDROCHLORIDE
  27. SYNTHROID [Concomitant]
     Active Substance: LEVOTHYROXINE SODIUM
  28. D MAC [Concomitant]
  29. LEVOTHYROXINE SODIUM [Concomitant]
     Active Substance: LEVOTHYROXINE SODIUM
  30. LEVOTHYROXINE SODIUM [Concomitant]
     Active Substance: LEVOTHYROXINE SODIUM
  31. EZETIMIBE [Concomitant]
     Active Substance: EZETIMIBE
  32. EZETIMIBE [Concomitant]
     Active Substance: EZETIMIBE
  33. FENTADUR [Concomitant]
  34. FENTADUR [Concomitant]
  35. FENTADUR [Concomitant]
  36. MACPERAN [METOCLOPRAMIDE] [Concomitant]
  37. PREDNISOLONE [Concomitant]
     Active Substance: PREDNISOLONE
  38. PREDNISOLONE [Concomitant]
     Active Substance: PREDNISOLONE
  39. PREDNISOLONE [Concomitant]
     Active Substance: PREDNISOLONE
  40. TEGOPRAZAN [Concomitant]
     Active Substance: TEGOPRAZAN
  41. TEGOPRAZAN [Concomitant]
     Active Substance: TEGOPRAZAN
  42. TEGOPRAZAN [Concomitant]
     Active Substance: TEGOPRAZAN
  43. TANTUM [BENZYDAMINE HYDROCHLORIDE] [Concomitant]
  44. ABSTRAL [Concomitant]
     Active Substance: FENTANYL CITRATE
  45. ABSTRAL [Concomitant]
     Active Substance: FENTANYL CITRATE
  46. ABSTRAL [Concomitant]
     Active Substance: FENTANYL CITRATE
  47. MOVIZOLO [Concomitant]
  48. MOVIZOLO [Concomitant]
  49. MOVIZOLO [Concomitant]
  50. BC MORPHINE SULFATE [Concomitant]
  51. BC MORPHINE SULFATE [Concomitant]
  52. BC MORPHINE SULFATE [Concomitant]
  53. BC MORPHINE SULFATE [Concomitant]
  54. SODIUM CHLORIDE [Concomitant]
     Active Substance: SODIUM CHLORIDE
  55. DEXTROSE [Concomitant]
     Active Substance: DEXTROSE MONOHYDRATE
  56. DEXTROSE [Concomitant]
     Active Substance: DEXTROSE MONOHYDRATE
  57. PREDISOL [METHYLPREDNISOLONE SODIUM SUCCINATE] [Concomitant]
  58. ISOTONIC SODIUM CHLORIDE SOLUTION [Concomitant]
     Active Substance: SODIUM CHLORIDE
  59. ISOTONIC SODIUM CHLORIDE SOLUTION [Concomitant]
     Active Substance: SODIUM CHLORIDE
  60. HEPARIN SODIUM [Concomitant]
     Active Substance: HEPARIN SODIUM
  61. HEPARIN SODIUM [Concomitant]
     Active Substance: HEPARIN SODIUM
  62. PANTOPRAZOLE SODIUM [Concomitant]
     Active Substance: PANTOPRAZOLE SODIUM
  63. MECKOOL [Concomitant]
  64. NYSTATIN [Concomitant]
     Active Substance: NYSTATIN
  65. NYSTATIN [Concomitant]
     Active Substance: NYSTATIN
  66. NYSTATIN [Concomitant]
     Active Substance: NYSTATIN
  67. SINIL FOLIC ACID [Concomitant]
  68. SINIL FOLIC ACID [Concomitant]
  69. AGIO [Concomitant]
  70. BEECOM [Concomitant]
  71. BEECOM [Concomitant]
  72. PENIRAMIN [Concomitant]
  73. IOBRIX [Concomitant]

REACTIONS (4)
  - Neurogenic bladder [Unknown]
  - Rhinitis allergic [Unknown]
  - Blister [Unknown]
  - Off label use [Unknown]
